FAERS Safety Report 5781960-3 (Version None)
Quarter: 2008Q2

REPORT INFORMATION
  Report Type: 
  Country: None (occurrence: None)
  Receive Date: 20080623
  Receipt Date: 20080617
  Transmission Date: 20081010
  Serious: Yes (Other)
  Sender: FDA-Public Use
  Company Number: B0526053A

PATIENT
  Age: 79 Year
  Sex: Female

DRUGS (11)
  1. AVANDIA [Suspect]
     Dosage: 4MG PER DAY
     Route: 048
  2. GLIMEPIRIDE [Suspect]
     Indication: DRUG USE FOR UNKNOWN INDICATION
     Dosage: 3MG PER DAY
     Route: 048
  3. FLUCONAZOLE [Suspect]
     Indication: DRUG USE FOR UNKNOWN INDICATION
     Dosage: 50MG PER DAY
     Route: 048
     Dates: start: 20080418, end: 20080519
  4. HYZAAR [Concomitant]
     Route: 048
  5. DIPROSONE [Concomitant]
     Route: 061
  6. COSOPT [Concomitant]
     Dosage: 1DROP TWICE PER DAY
     Route: 047
     Dates: start: 20080422
  7. NEXIUM [Concomitant]
     Dosage: 20MG PER DAY
     Route: 048
  8. CRESTOR [Concomitant]
     Dosage: 10MG PER DAY
     Route: 048
  9. ASPIRIN AND DIPYRIDAMOLE [Concomitant]
     Route: 048
  10. VITAMIN B [Concomitant]
     Dosage: 5MG PER DAY
     Route: 048
  11. SPIRIVA [Concomitant]
     Route: 055
     Dates: start: 20080115

REACTIONS (3)
  - COMA [None]
  - DRUG INTERACTION [None]
  - HYPOGLYCAEMIA [None]
